FAERS Safety Report 4815818-0 (Version None)
Quarter: 2005Q4

REPORT INFORMATION
  Report Type: 
  Country: None (occurrence: None)
  Receive Date: 20051031
  Receipt Date: 20050706
  Transmission Date: 20060501
  Serious: Yes (Other)
  Sender: FDA-Public Use
  Company Number: US-MERCK-0507USA01033

PATIENT
  Age: 64 Year
  Sex: Male
  Weight: 86 kg

DRUGS (11)
  1. VIOXX [Suspect]
     Indication: SHOULDER PAIN
     Route: 048
     Dates: start: 20030301, end: 20040701
  2. VIOXX [Suspect]
     Route: 048
     Dates: start: 20030301, end: 20040701
  3. VIOXX [Suspect]
     Indication: BACK PAIN
     Route: 048
     Dates: start: 20030301, end: 20040701
  4. VIOXX [Suspect]
     Route: 048
     Dates: start: 20030301, end: 20040701
  5. NORVASC [Concomitant]
     Route: 065
  6. HYDROCHLOROTHIAZIDE [Concomitant]
     Indication: HYPERTENSION
     Route: 065
  7. COZAAR [Concomitant]
     Indication: HYPERTENSION
     Route: 065
  8. LIPITOR [Concomitant]
     Indication: BLOOD CHOLESTEROL INCREASED
     Route: 065
     Dates: end: 20030101
  9. LIPITOR [Concomitant]
     Route: 065
     Dates: start: 20031010
  10. METHOCARBAMOL [Concomitant]
     Route: 065
  11. ASPIRIN [Concomitant]
     Route: 065

REACTIONS (6)
  - BLOOD CHOLESTEROL INCREASED [None]
  - CEREBROVASCULAR ACCIDENT [None]
  - GLOBAL AMNESIA [None]
  - LACUNAR INFARCTION [None]
  - LOW DENSITY LIPOPROTEIN INCREASED [None]
  - MYOSITIS [None]
